FAERS Safety Report 18775005 (Version 2)
Quarter: 2021Q3

REPORT INFORMATION
  Report Type: Report from Study
  Country: CN (occurrence: CN)
  Receive Date: 20210122
  Receipt Date: 20210827
  Transmission Date: 20211014
  Serious: Yes (Other)
  Sender: FDA-Public Use
  Company Number: NVSC2021CN009883

PATIENT
  Age: 60 Year
  Sex: Male

DRUGS (2)
  1. ZYKADIA [Suspect]
     Active Substance: CERITINIB
     Indication: NON-SMALL CELL LUNG CANCER
     Dosage: 750 MG
     Route: 048
     Dates: start: 20180816, end: 20190116
  2. ZYKADIA [Suspect]
     Active Substance: CERITINIB
     Dosage: 450 MG (3 CAPSULES)
     Route: 048

REACTIONS (13)
  - Hyperbilirubinaemia [Recovered/Resolved]
  - Gastrointestinal disorder [Unknown]
  - Gamma-glutamyltransferase increased [Recovered/Resolved]
  - Hyperbilirubinaemia [Recovered/Resolved]
  - Carcinoembryonic antigen increased [Recovering/Resolving]
  - Hyperbilirubinaemia [Recovered/Resolved]
  - Overdose [Unknown]
  - Blood alkaline phosphatase increased [Recovered/Resolved]
  - Hypercalcaemia [Recovered/Resolved]
  - Hyperbilirubinaemia [Recovered/Resolved]
  - Alanine aminotransferase increased [Recovered/Resolved]
  - Hypokalaemia [Recovered/Resolved]
  - Hypercalcaemia [Recovered/Resolved]

NARRATIVE: CASE EVENT DATE: 20180816
